FAERS Safety Report 14098313 (Version 2)
Quarter: 2017Q4

REPORT INFORMATION
  Report Type: Other
  Country: GB (occurrence: GB)
  Receive Date: 20171017
  Receipt Date: 20171025
  Transmission Date: 20180321
  Serious: Yes (Life-Threatening, Other)
  Sender: FDA-Public Use
  Company Number: GB-CELLTRION HEALTHCARE JAPAN K.K.-2017GB013992

PATIENT

DRUGS (3)
  1. HUMIRA [Suspect]
     Active Substance: ADALIMUMAB
     Indication: CROHN^S DISEASE
     Dosage: 40 MG, 1/WEEK
     Route: 058
     Dates: start: 20170130, end: 20170515
  2. INFLIXIMAB HOSPIRA [Suspect]
     Active Substance: INFLIXIMAB
     Indication: CROHN^S DISEASE
     Dosage: 5 MG/KG, 1/WEEK
     Route: 042
     Dates: start: 20131111, end: 20161010
  3. PENTASA [Concomitant]
     Active Substance: MESALAMINE

REACTIONS (1)
  - Small intestine adenocarcinoma [Not Recovered/Not Resolved]

NARRATIVE: CASE EVENT DATE: 20170620
